FAERS Safety Report 18895472 (Version 1)
Quarter: 2021Q1

REPORT INFORMATION
  Report Type: Spontaneous
  Country: FR (occurrence: FR)
  Receive Date: 20210216
  Receipt Date: 20210216
  Transmission Date: 20210420
  Serious: Yes (Hospitalization, Other)
  Sender: FDA-Public Use
  Company Number: FR-CELLTRION INC.-2021FR001603

PATIENT

DRUGS (7)
  1. TN UNSPECIFIED (VENTOCLAX) [Suspect]
     Active Substance: VENETOCLAX
     Dosage: 50 MG
     Route: 065
  2. TN UNSPECIFIED (VENETOCLAX) [Suspect]
     Active Substance: VENETOCLAX
     Dosage: 100 MG
     Route: 065
  3. PREDNISONE NOS [Suspect]
     Active Substance: PREDNISONE
     Indication: CHRONIC LYMPHOCYTIC LEUKAEMIA
     Dosage: 0.5 MG/KG
     Route: 048
  4. TN UNSPECIFIED (VENETOCLAX) [Suspect]
     Active Substance: VENETOCLAX
     Indication: CHRONIC LYMPHOCYTIC LEUKAEMIA
     Dosage: 20 MG
     Route: 065
  5. TN UNSPECIFIED (VENETOCLAX) [Suspect]
     Active Substance: VENETOCLAX
     Dosage: 200 MG
     Route: 065
  6. RITUXIMAB (UNKNOWN) [Suspect]
     Active Substance: RITUXIMAB
     Indication: CHRONIC LYMPHOCYTIC LEUKAEMIA
     Dosage: 375 MG/M2
     Route: 065
  7. TN UNSPECIFIED (METHOTREXATE) [Suspect]
     Active Substance: METHOTREXATE
     Indication: CHRONIC LYMPHOCYTIC LEUKAEMIA
     Dosage: 2000 MG/M2
     Route: 042

REACTIONS (2)
  - Neurological symptom [Recovered/Resolved with Sequelae]
  - Neutropenia [Recovered/Resolved]
